FAERS Safety Report 25071718 (Version 1)
Quarter: 2025Q1

REPORT INFORMATION
  Report Type: Spontaneous
  Country: CA (occurrence: CA)
  Receive Date: 20250313
  Receipt Date: 20250313
  Transmission Date: 20250408
  Serious: Yes (Death, Life-Threatening, Hospitalization, Disabling, Congenital Anomaly, Other)
  Sender: Haleon PLC
  Company Number: CA-AMGEN-CANSP2015095516

PATIENT
  Age: 43 Year
  Sex: Female
  Weight: 70 kg

DRUGS (613)
  1. VOLTAREN [Suspect]
     Active Substance: DICLOFENAC SODIUM
     Indication: Product used for unknown indication
     Route: 065
  2. INFLIXIMAB [Suspect]
     Active Substance: INFLIXIMAB
     Indication: Rheumatoid arthritis
     Route: 042
  3. INFLIXIMAB [Suspect]
     Active Substance: INFLIXIMAB
     Indication: Colitis ulcerative
     Route: 065
  4. INFLIXIMAB [Suspect]
     Active Substance: INFLIXIMAB
     Indication: Psoriatic arthropathy
     Route: 042
  5. INFLIXIMAB [Suspect]
     Active Substance: INFLIXIMAB
     Route: 065
  6. CALTRATE WITH VITAMIN D [Suspect]
     Active Substance: CALCIUM CARBONATE\CHOLECALCIFEROL
     Indication: Product used for unknown indication
     Route: 065
  7. DICLOFENAC SODIUM [Suspect]
     Active Substance: DICLOFENAC SODIUM
     Indication: Rheumatoid arthritis
     Route: 065
  8. DICLOFENAC SODIUM [Suspect]
     Active Substance: DICLOFENAC SODIUM
     Route: 065
  9. DICLOFENAC SODIUM [Suspect]
     Active Substance: DICLOFENAC SODIUM
     Route: 065
  10. DICLOFENAC SODIUM [Suspect]
     Active Substance: DICLOFENAC SODIUM
     Route: 048
  11. DICLOFENAC SODIUM [Suspect]
     Active Substance: DICLOFENAC SODIUM
     Route: 047
  12. DICLOFENAC SODIUM [Suspect]
     Active Substance: DICLOFENAC SODIUM
     Route: 065
  13. DICLOFENAC SODIUM [Suspect]
     Active Substance: DICLOFENAC SODIUM
     Route: 048
  14. DICLOFENAC SODIUM [Suspect]
     Active Substance: DICLOFENAC SODIUM
     Route: 065
  15. DICLOFENAC SODIUM [Suspect]
     Active Substance: DICLOFENAC SODIUM
     Route: 058
  16. DICLOFENAC SODIUM [Suspect]
     Active Substance: DICLOFENAC SODIUM
     Route: 065
  17. DICLOFENAC SODIUM [Suspect]
     Active Substance: DICLOFENAC SODIUM
     Route: 047
  18. DICLOFENAC SODIUM [Suspect]
     Active Substance: DICLOFENAC SODIUM
     Route: 047
  19. DICLOFENAC POTASSIUM [Suspect]
     Active Substance: DICLOFENAC POTASSIUM
     Indication: Rheumatoid arthritis
     Route: 065
  20. DICLOFENAC POTASSIUM [Suspect]
     Active Substance: DICLOFENAC POTASSIUM
     Route: 065
  21. DICLOFENAC POTASSIUM [Suspect]
     Active Substance: DICLOFENAC POTASSIUM
     Route: 048
  22. DICLOFENAC POTASSIUM [Suspect]
     Active Substance: DICLOFENAC POTASSIUM
     Route: 048
  23. ADVIL [Suspect]
     Active Substance: IBUPROFEN
     Indication: Product used for unknown indication
     Route: 065
  24. CALTRATE [Suspect]
     Active Substance: CALCIUM CARBONATE
     Indication: Product used for unknown indication
     Route: 065
  25. TUMS ULTRA [Suspect]
     Active Substance: CALCIUM CARBONATE
     Indication: Product used for unknown indication
     Route: 065
  26. DICLOFENAC [Suspect]
     Active Substance: DICLOFENAC
     Indication: Product used for unknown indication
     Route: 065
  27. DICLOFENAC [Suspect]
     Active Substance: DICLOFENAC
     Route: 065
  28. DICLOFENAC [Suspect]
     Active Substance: DICLOFENAC
     Route: 065
  29. DICLOFENAC [Suspect]
     Active Substance: DICLOFENAC
     Route: 047
  30. RITUXIMAB [Suspect]
     Active Substance: RITUXIMAB
     Indication: Rheumatoid arthritis
     Route: 042
  31. RITUXIMAB [Suspect]
     Active Substance: RITUXIMAB
     Route: 042
  32. RITUXIMAB [Suspect]
     Active Substance: RITUXIMAB
     Route: 042
  33. RITUXIMAB [Suspect]
     Active Substance: RITUXIMAB
     Route: 058
  34. RITUXIMAB [Suspect]
     Active Substance: RITUXIMAB
     Route: 065
  35. RITUXIMAB [Suspect]
     Active Substance: RITUXIMAB
     Route: 048
  36. RITUXIMAB [Suspect]
     Active Substance: RITUXIMAB
     Route: 065
  37. RITUXIMAB [Suspect]
     Active Substance: RITUXIMAB
     Route: 016
  38. RITUXIMAB [Suspect]
     Active Substance: RITUXIMAB
     Route: 042
  39. AIMOVIG [Suspect]
     Active Substance: ERENUMAB-AOOE
     Indication: Migraine
     Route: 058
  40. ADALIMUMAB [Suspect]
     Active Substance: ADALIMUMAB
     Indication: Psoriatic arthropathy
     Route: 065
  41. ADALIMUMAB [Suspect]
     Active Substance: ADALIMUMAB
     Indication: Rheumatoid arthritis
     Route: 048
  42. ADALIMUMAB [Suspect]
     Active Substance: ADALIMUMAB
     Route: 058
  43. ADALIMUMAB [Suspect]
     Active Substance: ADALIMUMAB
     Route: 042
  44. ADALIMUMAB [Suspect]
     Active Substance: ADALIMUMAB
     Route: 058
  45. ADALIMUMAB [Suspect]
     Active Substance: ADALIMUMAB
     Route: 058
  46. COSENTYX [Suspect]
     Active Substance: SECUKINUMAB
     Indication: Psoriatic arthropathy
     Route: 065
  47. COSENTYX [Suspect]
     Active Substance: SECUKINUMAB
     Indication: Rheumatoid arthritis
     Route: 005
  48. COSENTYX [Suspect]
     Active Substance: SECUKINUMAB
     Route: 051
  49. COSENTYX [Suspect]
     Active Substance: SECUKINUMAB
     Route: 048
  50. LEFLUNOMIDE [Suspect]
     Active Substance: LEFLUNOMIDE
     Indication: Rheumatoid arthritis
     Route: 065
  51. LEFLUNOMIDE [Suspect]
     Active Substance: LEFLUNOMIDE
     Route: 048
  52. LEFLUNOMIDE [Suspect]
     Active Substance: LEFLUNOMIDE
     Route: 048
  53. LEFLUNOMIDE [Suspect]
     Active Substance: LEFLUNOMIDE
     Route: 048
  54. LEFLUNOMIDE [Suspect]
     Active Substance: LEFLUNOMIDE
     Route: 048
  55. LEFLUNOMIDE [Suspect]
     Active Substance: LEFLUNOMIDE
     Route: 065
  56. MYCOPHENOLATE MOFETIL [Suspect]
     Active Substance: MYCOPHENOLATE MOFETIL
     Indication: Rheumatoid arthritis
     Route: 065
  57. MYCOPHENOLATE MOFETIL [Suspect]
     Active Substance: MYCOPHENOLATE MOFETIL
     Route: 065
  58. OXYCODONE [Suspect]
     Active Substance: OXYCODONE
     Indication: Product used for unknown indication
     Route: 065
  59. OXYCODONE [Suspect]
     Active Substance: OXYCODONE
     Route: 042
  60. OXYCODONE [Suspect]
     Active Substance: OXYCODONE
     Dosage: 6 MG, QD (3 MILLIGRAM, BID)
     Route: 065
  61. QUETIAPINE [Suspect]
     Active Substance: QUETIAPINE
     Indication: Product used for unknown indication
     Route: 065
  62. QUETIAPINE [Suspect]
     Active Substance: QUETIAPINE
     Route: 048
  63. CETIRIZINE HYDROCHLORIDE AND PSEUDOEPHEDRINE HYDROCHLORIDE [Suspect]
     Active Substance: CETIRIZINE HYDROCHLORIDE\PSEUDOEPHEDRINE HYDROCHLORIDE
     Indication: Rheumatoid arthritis
     Route: 065
  64. CETIRIZINE HYDROCHLORIDE AND PSEUDOEPHEDRINE HYDROCHLORIDE [Suspect]
     Active Substance: CETIRIZINE HYDROCHLORIDE\PSEUDOEPHEDRINE HYDROCHLORIDE
     Route: 065
  65. CORTISONE ACETATE [Suspect]
     Active Substance: CORTISONE ACETATE
     Indication: Rheumatoid arthritis
     Route: 065
  66. CORTISONE ACETATE [Suspect]
     Active Substance: CORTISONE ACETATE
     Route: 065
  67. CORTISONE ACETATE [Suspect]
     Active Substance: CORTISONE ACETATE
     Route: 065
  68. CORTISONE ACETATE [Suspect]
     Active Substance: CORTISONE ACETATE
     Route: 065
  69. CORTISONE ACETATE [Suspect]
     Active Substance: CORTISONE ACETATE
     Route: 003
  70. CORTISONE ACETATE [Suspect]
     Active Substance: CORTISONE ACETATE
     Route: 065
  71. PSEUDOEPHEDRINE HYDROCHLORIDE [Suspect]
     Active Substance: PSEUDOEPHEDRINE HYDROCHLORIDE
     Indication: Rheumatoid arthritis
     Route: 065
  72. PSEUDOEPHEDRINE HYDROCHLORIDE [Suspect]
     Active Substance: PSEUDOEPHEDRINE HYDROCHLORIDE
     Route: 065
  73. PSEUDOEPHEDRINE HYDROCHLORIDE [Suspect]
     Active Substance: PSEUDOEPHEDRINE HYDROCHLORIDE
     Route: 065
  74. SARILUMAB [Suspect]
     Active Substance: SARILUMAB
     Indication: Rheumatoid arthritis
     Route: 065
  75. SULFATHALIDINE [Suspect]
     Active Substance: PHTHALYLSULFATHIAZOLE
     Indication: Product used for unknown indication
     Route: 065
  76. CETIRIZINE HYDROCHLORIDE [Suspect]
     Active Substance: CETIRIZINE HYDROCHLORIDE
     Indication: Rheumatoid arthritis
     Route: 065
  77. CETIRIZINE HYDROCHLORIDE [Suspect]
     Active Substance: CETIRIZINE HYDROCHLORIDE
     Route: 065
  78. CETIRIZINE HYDROCHLORIDE [Suspect]
     Active Substance: CETIRIZINE HYDROCHLORIDE
     Route: 065
  79. CETIRIZINE HYDROCHLORIDE [Suspect]
     Active Substance: CETIRIZINE HYDROCHLORIDE
     Route: 065
  80. CETIRIZINE HYDROCHLORIDE [Suspect]
     Active Substance: CETIRIZINE HYDROCHLORIDE
     Route: 016
  81. CETIRIZINE HYDROCHLORIDE [Suspect]
     Active Substance: CETIRIZINE HYDROCHLORIDE
     Route: 048
  82. CETIRIZINE HYDROCHLORIDE [Suspect]
     Active Substance: CETIRIZINE HYDROCHLORIDE
     Route: 065
  83. CETIRIZINE HYDROCHLORIDE [Suspect]
     Active Substance: CETIRIZINE HYDROCHLORIDE
     Route: 048
  84. CETIRIZINE HYDROCHLORIDE [Suspect]
     Active Substance: CETIRIZINE HYDROCHLORIDE
     Route: 065
  85. CETIRIZINE HYDROCHLORIDE [Suspect]
     Active Substance: CETIRIZINE HYDROCHLORIDE
     Route: 048
  86. STELARA [Suspect]
     Active Substance: USTEKINUMAB
     Indication: Psoriatic arthropathy
     Route: 042
  87. STELARA [Suspect]
     Active Substance: USTEKINUMAB
     Indication: Rheumatoid arthritis
     Route: 058
  88. STELARA [Suspect]
     Active Substance: USTEKINUMAB
     Route: 065
  89. STELARA [Suspect]
     Active Substance: USTEKINUMAB
     Route: 058
  90. STELARA [Suspect]
     Active Substance: USTEKINUMAB
     Route: 042
  91. ACETAMINOPHEN [Suspect]
     Active Substance: ACETAMINOPHEN
     Indication: Product used for unknown indication
     Route: 065
  92. CORTISONE [Suspect]
     Active Substance: CORTISONE
     Indication: Rheumatoid arthritis
     Route: 065
  93. CORTISONE [Suspect]
     Active Substance: CORTISONE
     Route: 058
  94. CORTISONE [Suspect]
     Active Substance: CORTISONE
     Route: 003
  95. CORTISONE [Suspect]
     Active Substance: CORTISONE
     Route: 065
  96. CORTISONE [Suspect]
     Active Substance: CORTISONE
     Route: 065
  97. CORTISONE [Suspect]
     Active Substance: CORTISONE
     Route: 065
  98. CORTISONE [Suspect]
     Active Substance: CORTISONE
     Route: 058
  99. CORTISONE [Suspect]
     Active Substance: CORTISONE
     Route: 048
  100. CORTISONE [Suspect]
     Active Substance: CORTISONE
     Route: 058
  101. CORTISONE [Suspect]
     Active Substance: CORTISONE
     Route: 048
  102. GOLIMUMAB [Suspect]
     Active Substance: GOLIMUMAB
     Indication: Rheumatoid arthritis
     Route: 065
  103. CETIRIZINE [Suspect]
     Active Substance: CETIRIZINE HYDROCHLORIDE
     Indication: Off label use
     Route: 065
  104. CETIRIZINE [Suspect]
     Active Substance: CETIRIZINE HYDROCHLORIDE
     Indication: Rheumatoid arthritis
     Route: 065
  105. CETIRIZINE [Suspect]
     Active Substance: CETIRIZINE HYDROCHLORIDE
     Route: 048
  106. CETIRIZINE [Suspect]
     Active Substance: CETIRIZINE HYDROCHLORIDE
     Route: 065
  107. CETIRIZINE [Suspect]
     Active Substance: CETIRIZINE HYDROCHLORIDE
     Route: 065
  108. CETIRIZINE [Suspect]
     Active Substance: CETIRIZINE HYDROCHLORIDE
     Route: 016
  109. CETIRIZINE [Suspect]
     Active Substance: CETIRIZINE HYDROCHLORIDE
     Route: 048
  110. CETIRIZINE [Suspect]
     Active Substance: CETIRIZINE HYDROCHLORIDE
     Route: 016
  111. CETIRIZINE [Suspect]
     Active Substance: CETIRIZINE HYDROCHLORIDE
     Route: 048
  112. PREDNISONE [Suspect]
     Active Substance: PREDNISONE
     Indication: Rheumatoid arthritis
     Route: 065
  113. PREDNISONE [Suspect]
     Active Substance: PREDNISONE
     Route: 065
  114. PREDNISONE [Suspect]
     Active Substance: PREDNISONE
     Route: 065
  115. PREDNISONE [Suspect]
     Active Substance: PREDNISONE
     Route: 065
  116. PREDNISONE [Suspect]
     Active Substance: PREDNISONE
     Route: 048
  117. PREDNISONE [Suspect]
     Active Substance: PREDNISONE
     Route: 042
  118. PREDNISONE [Suspect]
     Active Substance: PREDNISONE
     Route: 048
  119. PREDNISONE [Suspect]
     Active Substance: PREDNISONE
     Route: 048
  120. PREDNISONE [Suspect]
     Active Substance: PREDNISONE
     Route: 048
  121. TOFACITINIB CITRATE [Suspect]
     Active Substance: TOFACITINIB CITRATE
     Indication: Rheumatoid arthritis
     Dosage: 10 MG, QD (5 MILLIGRAM, BID); UNKNOWN
     Route: 065
  122. TOFACITINIB CITRATE [Suspect]
     Active Substance: TOFACITINIB CITRATE
     Route: 065
  123. TOFACITINIB CITRATE [Suspect]
     Active Substance: TOFACITINIB CITRATE
     Route: 065
  124. TOFACITINIB CITRATE [Suspect]
     Active Substance: TOFACITINIB CITRATE
     Route: 065
  125. TOFACITINIB CITRATE [Suspect]
     Active Substance: TOFACITINIB CITRATE
     Route: 065
  126. TOFACITINIB CITRATE [Suspect]
     Active Substance: TOFACITINIB CITRATE
     Route: 065
  127. ACETAMINOPHEN [Suspect]
     Active Substance: ACETAMINOPHEN
     Indication: Rheumatoid arthritis
     Route: 065
  128. ACETAMINOPHEN [Suspect]
     Active Substance: ACETAMINOPHEN
     Indication: Pyrexia
     Route: 065
  129. ACETAMINOPHEN [Suspect]
     Active Substance: ACETAMINOPHEN
     Indication: Pain
     Route: 065
  130. ACETAMINOPHEN [Suspect]
     Active Substance: ACETAMINOPHEN
     Route: 048
  131. ACETAMINOPHEN [Suspect]
     Active Substance: ACETAMINOPHEN
     Route: 016
  132. ACETAMINOPHEN [Suspect]
     Active Substance: ACETAMINOPHEN
     Route: 048
  133. ACETAMINOPHEN [Suspect]
     Active Substance: ACETAMINOPHEN
     Route: 058
  134. ACETAMINOPHEN [Suspect]
     Active Substance: ACETAMINOPHEN
     Route: 058
  135. KEVZARA [Suspect]
     Active Substance: SARILUMAB
     Indication: Rheumatoid arthritis
     Route: 065
  136. HYDROCORTISONE [Suspect]
     Active Substance: HYDROCORTISONE
     Indication: Rheumatoid arthritis
     Route: 065
  137. HYDROCORTISONE [Suspect]
     Active Substance: HYDROCORTISONE
     Route: 065
  138. HYDROCORTISONE [Suspect]
     Active Substance: HYDROCORTISONE
     Route: 058
  139. HYDROCORTISONE [Suspect]
     Active Substance: HYDROCORTISONE
     Route: 058
  140. HYDROCORTISONE [Suspect]
     Active Substance: HYDROCORTISONE
     Route: 048
  141. SULFASALAZINE [Suspect]
     Active Substance: SULFASALAZINE
     Indication: Product used for unknown indication
     Route: 065
  142. LISINOPRIL [Suspect]
     Active Substance: LISINOPRIL
     Indication: Product used for unknown indication
     Route: 065
  143. VITAMIN D3 [Suspect]
     Active Substance: CHOLECALCIFEROL
     Indication: Product used for unknown indication
     Route: 016
  144. VITAMIN D3 [Suspect]
     Active Substance: CHOLECALCIFEROL
     Route: 065
  145. CAFFEINE CITRATE [Suspect]
     Active Substance: CAFFEINE CITRATE
     Indication: Product used for unknown indication
     Route: 065
  146. CETIRIZINE HYDROCHLORIDE\PSEUDOEPHEDRINE HYDROCHLORIDE [Suspect]
     Active Substance: CETIRIZINE HYDROCHLORIDE\PSEUDOEPHEDRINE HYDROCHLORIDE
     Indication: Rheumatoid arthritis
     Route: 065
  147. CETIRIZINE HYDROCHLORIDE\PSEUDOEPHEDRINE HYDROCHLORIDE [Suspect]
     Active Substance: CETIRIZINE HYDROCHLORIDE\PSEUDOEPHEDRINE HYDROCHLORIDE
     Indication: Off label use
     Route: 065
  148. CETIRIZINE HYDROCHLORIDE\PSEUDOEPHEDRINE HYDROCHLORIDE [Suspect]
     Active Substance: CETIRIZINE HYDROCHLORIDE\PSEUDOEPHEDRINE HYDROCHLORIDE
     Route: 065
  149. CETIRIZINE HYDROCHLORIDE\PSEUDOEPHEDRINE HYDROCHLORIDE [Suspect]
     Active Substance: CETIRIZINE HYDROCHLORIDE\PSEUDOEPHEDRINE HYDROCHLORIDE
     Route: 048
  150. TOFACITINIB [Suspect]
     Active Substance: TOFACITINIB
     Indication: Rheumatoid arthritis
     Route: 065
  151. APREMILAST [Suspect]
     Active Substance: APREMILAST
     Indication: Product used for unknown indication
     Dosage: 6 MG, QD (3 MILLIGRAM, BID)
     Route: 065
  152. NAPROXEN SODIUM [Suspect]
     Active Substance: NAPROXEN SODIUM
     Indication: Rheumatoid arthritis
     Route: 065
  153. NAPROXEN SODIUM [Suspect]
     Active Substance: NAPROXEN SODIUM
     Indication: Headache
     Dosage: 1000 MG, QD (500MG, BID)
     Route: 065
  154. NAPROXEN SODIUM [Suspect]
     Active Substance: NAPROXEN SODIUM
     Route: 065
  155. NAPROXEN SODIUM [Suspect]
     Active Substance: NAPROXEN SODIUM
     Route: 065
  156. NAPROXEN SODIUM [Suspect]
     Active Substance: NAPROXEN SODIUM
     Route: 065
  157. CERTOLIZUMAB PEGOL [Suspect]
     Active Substance: CERTOLIZUMAB PEGOL
     Indication: Rheumatoid arthritis
     Route: 058
  158. CERTOLIZUMAB PEGOL [Suspect]
     Active Substance: CERTOLIZUMAB PEGOL
     Route: 058
  159. CETIRIZINE HYDROCHLORIDE [Suspect]
     Active Substance: CETIRIZINE HYDROCHLORIDE
     Indication: Rheumatoid arthritis
     Route: 065
  160. CETIRIZINE HYDROCHLORIDE [Suspect]
     Active Substance: CETIRIZINE HYDROCHLORIDE
     Route: 048
  161. CETIRIZINE HYDROCHLORIDE [Suspect]
     Active Substance: CETIRIZINE HYDROCHLORIDE
     Route: 065
  162. CETIRIZINE HYDROCHLORIDE [Suspect]
     Active Substance: CETIRIZINE HYDROCHLORIDE
     Route: 016
  163. CELECOXIB [Suspect]
     Active Substance: CELECOXIB
     Indication: Off label use
     Route: 065
  164. CELECOXIB [Suspect]
     Active Substance: CELECOXIB
     Indication: Rheumatoid arthritis
     Route: 065
  165. CELECOXIB [Suspect]
     Active Substance: CELECOXIB
     Route: 048
  166. CELECOXIB [Suspect]
     Active Substance: CELECOXIB
     Route: 048
  167. CELECOXIB [Suspect]
     Active Substance: CELECOXIB
     Route: 048
  168. CHLORAPREP [Suspect]
     Active Substance: CHLORHEXIDINE GLUCONATE\ISOPROPYL ALCOHOL
     Indication: Rheumatoid arthritis
     Route: 065
  169. CHLORAPREP [Suspect]
     Active Substance: CHLORHEXIDINE GLUCONATE\ISOPROPYL ALCOHOL
     Route: 065
  170. CHLORAPREP [Suspect]
     Active Substance: CHLORHEXIDINE GLUCONATE\ISOPROPYL ALCOHOL
     Route: 058
  171. CHLORAPREP [Suspect]
     Active Substance: CHLORHEXIDINE GLUCONATE\ISOPROPYL ALCOHOL
     Route: 065
  172. CHLORAPREP [Suspect]
     Active Substance: CHLORHEXIDINE GLUCONATE\ISOPROPYL ALCOHOL
     Route: 048
  173. CHLORHEXIDINE [Suspect]
     Active Substance: CHLORHEXIDINE
     Indication: Rheumatoid arthritis
     Route: 002
  174. CHLORHEXIDINE [Suspect]
     Active Substance: CHLORHEXIDINE
     Route: 048
  175. CHLORHEXIDINE [Suspect]
     Active Substance: CHLORHEXIDINE
     Route: 065
  176. CHLORHEXIDINE [Suspect]
     Active Substance: CHLORHEXIDINE
     Route: 065
  177. CHLORHEXIDINE [Suspect]
     Active Substance: CHLORHEXIDINE
     Route: 058
  178. DOXYCYCLINE HYCLATE [Suspect]
     Active Substance: DOXYCYCLINE HYCLATE
     Indication: Product used for unknown indication
     Route: 065
  179. DOXYCYCLINE HYCLATE [Suspect]
     Active Substance: DOXYCYCLINE HYCLATE
     Route: 065
  180. DOXYCYCLINE HYCLATE [Suspect]
     Active Substance: DOXYCYCLINE HYCLATE
     Route: 058
  181. FLUMETHASONE PIVALATE [Suspect]
     Active Substance: FLUMETHASONE PIVALATE
     Indication: Rheumatoid arthritis
     Route: 065
  182. FLUMETHASONE PIVALATE [Suspect]
     Active Substance: FLUMETHASONE PIVALATE
     Route: 058
  183. FLUMETHASONE PIVALATE [Suspect]
     Active Substance: FLUMETHASONE PIVALATE
     Route: 003
  184. FLUMETHASONE PIVALATE [Suspect]
     Active Substance: FLUMETHASONE PIVALATE
     Route: 065
  185. HUMIRA [Suspect]
     Active Substance: ADALIMUMAB
     Indication: Rheumatoid arthritis
     Route: 058
  186. HUMIRA [Suspect]
     Active Substance: ADALIMUMAB
     Indication: Psoriatic arthropathy
     Route: 058
  187. HUMIRA [Suspect]
     Active Substance: ADALIMUMAB
     Route: 057
  188. HUMIRA [Suspect]
     Active Substance: ADALIMUMAB
     Route: 065
  189. HUMIRA [Suspect]
     Active Substance: ADALIMUMAB
     Route: 058
  190. HUMIRA [Suspect]
     Active Substance: ADALIMUMAB
     Route: 058
  191. HUMIRA [Suspect]
     Active Substance: ADALIMUMAB
     Route: 058
  192. HYDROCORTISONE ACETATE [Suspect]
     Active Substance: HYDROCORTISONE ACETATE
     Indication: Rheumatoid arthritis
     Route: 065
  193. HYDROCORTISONE ACETATE [Suspect]
     Active Substance: HYDROCORTISONE ACETATE
     Route: 065
  194. HYDROCORTISONE ACETATE [Suspect]
     Active Substance: HYDROCORTISONE ACETATE
     Route: 048
  195. HYDROCORTISONE ACETATE [Suspect]
     Active Substance: HYDROCORTISONE ACETATE
     Route: 065
  196. HYDROCORTISONE ACETATE [Suspect]
     Active Substance: HYDROCORTISONE ACETATE
     Route: 065
  197. HYDROCORTISONE ACETATE [Suspect]
     Active Substance: HYDROCORTISONE ACETATE
     Route: 003
  198. HYDROCORTISONE ACETATE [Suspect]
     Active Substance: HYDROCORTISONE ACETATE
     Route: 058
  199. HYDROCORTISONE ACETATE [Suspect]
     Active Substance: HYDROCORTISONE ACETATE
     Route: 065
  200. OXYCODONE TEREPHTHALATE [Suspect]
     Active Substance: OXYCODONE TEREPHTHALATE
     Indication: Product used for unknown indication
     Route: 065
  201. PERIOGARD [Suspect]
     Active Substance: CHLORHEXIDINE GLUCONATE
     Indication: Product used for unknown indication
     Route: 002
  202. PERIOGARD [Suspect]
     Active Substance: CHLORHEXIDINE GLUCONATE
     Route: 002
  203. PERIOGARD [Suspect]
     Active Substance: CHLORHEXIDINE GLUCONATE
     Route: 065
  204. RAMIPRIL [Suspect]
     Active Substance: RAMIPRIL
     Indication: Product used for unknown indication
     Route: 016
  205. RAMIPRIL [Suspect]
     Active Substance: RAMIPRIL
     Route: 065
  206. HYALURONIDASE (HUMAN RECOMBINANT)\RITUXIMAB [Suspect]
     Active Substance: HYALURONIDASE (HUMAN RECOMBINANT)\RITUXIMAB
     Indication: Rheumatoid arthritis
     Route: 065
  207. DIETARY SUPPLEMENT\HERBALS [Suspect]
     Active Substance: DIETARY SUPPLEMENT\HERBALS
     Indication: Product used for unknown indication
     Route: 065
  208. DIETARY SUPPLEMENT\HERBALS [Suspect]
     Active Substance: DIETARY SUPPLEMENT\HERBALS
     Route: 058
  209. USTEKINUMAB [Suspect]
     Active Substance: USTEKINUMAB
     Indication: Rheumatoid arthritis
     Route: 058
  210. USTEKINUMAB [Suspect]
     Active Substance: USTEKINUMAB
     Route: 042
  211. PREDNISONE [Suspect]
     Active Substance: PREDNISONE
     Indication: Rheumatoid arthritis
     Route: 065
  212. PREDNISONE [Suspect]
     Active Substance: PREDNISONE
     Route: 048
  213. ACETAMINOPHEN\OXYCODONE HYDROCHLORIDE [Suspect]
     Active Substance: ACETAMINOPHEN\OXYCODONE HYDROCHLORIDE
     Indication: Product used for unknown indication
     Route: 065
  214. DICLOFENAC SODIUM [Suspect]
     Active Substance: DICLOFENAC SODIUM
     Indication: Product used for unknown indication
     Route: 065
  215. DICLOFENAC SODIUM [Suspect]
     Active Substance: DICLOFENAC SODIUM
     Route: 047
  216. DICLOFENAC SODIUM [Suspect]
     Active Substance: DICLOFENAC SODIUM
     Route: 065
  217. OTEZLA [Suspect]
     Active Substance: APREMILAST
     Indication: Rheumatoid arthritis
     Route: 048
  218. OTEZLA [Suspect]
     Active Substance: APREMILAST
     Route: 065
  219. OTEZLA [Suspect]
     Active Substance: APREMILAST
     Route: 048
  220. OTEZLA [Suspect]
     Active Substance: APREMILAST
     Route: 065
  221. OTEZLA [Suspect]
     Active Substance: APREMILAST
     Route: 048
  222. OTEZLA [Suspect]
     Active Substance: APREMILAST
     Route: 065
  223. OTEZLA [Suspect]
     Active Substance: APREMILAST
     Route: 048
  224. OTEZLA [Suspect]
     Active Substance: APREMILAST
     Route: 065
  225. OTEZLA [Suspect]
     Active Substance: APREMILAST
     Route: 048
  226. OTEZLA [Suspect]
     Active Substance: APREMILAST
     Route: 065
  227. OTEZLA [Suspect]
     Active Substance: APREMILAST
     Route: 065
  228. ENBREL [Suspect]
     Active Substance: ETANERCEPT
     Indication: Rheumatoid arthritis
     Route: 058
  229. ENBREL [Suspect]
     Active Substance: ETANERCEPT
     Route: 058
  230. ENBREL [Suspect]
     Active Substance: ETANERCEPT
  231. ENBREL [Suspect]
     Active Substance: ETANERCEPT
     Route: 058
  232. ENBREL [Suspect]
     Active Substance: ETANERCEPT
     Route: 058
  233. ENBREL [Suspect]
     Active Substance: ETANERCEPT
     Route: 065
  234. ENBREL [Suspect]
     Active Substance: ETANERCEPT
     Route: 065
  235. ENBREL [Suspect]
     Active Substance: ETANERCEPT
     Route: 058
  236. ENBREL [Suspect]
     Active Substance: ETANERCEPT
     Route: 058
  237. ENBREL [Suspect]
     Active Substance: ETANERCEPT
     Route: 058
  238. ENBREL [Suspect]
     Active Substance: ETANERCEPT
     Route: 048
  239. ENBREL [Suspect]
     Active Substance: ETANERCEPT
     Route: 065
  240. ENBREL [Suspect]
     Active Substance: ETANERCEPT
     Route: 058
  241. ENBREL [Suspect]
     Active Substance: ETANERCEPT
     Route: 058
  242. ENBREL [Suspect]
     Active Substance: ETANERCEPT
     Route: 058
  243. PREDNISONE [Suspect]
     Active Substance: PREDNISONE
     Indication: Rheumatoid arthritis
     Route: 016
  244. PREDNISONE [Suspect]
     Active Substance: PREDNISONE
     Indication: Condition aggravated
     Route: 048
  245. PREDNISONE [Suspect]
     Active Substance: PREDNISONE
     Indication: Psoriatic arthropathy
     Route: 042
  246. PREDNISONE [Suspect]
     Active Substance: PREDNISONE
     Indication: Arthralgia
     Route: 048
  247. PREDNISONE [Suspect]
     Active Substance: PREDNISONE
     Route: 065
  248. PREDNISONE [Suspect]
     Active Substance: PREDNISONE
     Route: 048
  249. PREDNISONE [Suspect]
     Active Substance: PREDNISONE
     Route: 048
  250. PREDNISONE [Suspect]
     Active Substance: PREDNISONE
     Route: 048
  251. PREDNISONE [Suspect]
     Active Substance: PREDNISONE
     Route: 048
  252. PREDNISONE [Suspect]
     Active Substance: PREDNISONE
     Route: 065
  253. PREDNISONE [Suspect]
     Active Substance: PREDNISONE
     Route: 048
  254. PREDNISONE [Suspect]
     Active Substance: PREDNISONE
     Route: 048
  255. PREDNISONE [Suspect]
     Active Substance: PREDNISONE
     Route: 048
  256. PREDNISONE [Suspect]
     Active Substance: PREDNISONE
     Route: 065
  257. ACTEMRA [Suspect]
     Active Substance: TOCILIZUMAB
     Indication: Rheumatoid arthritis
     Route: 058
  258. ACTEMRA [Suspect]
     Active Substance: TOCILIZUMAB
     Route: 065
  259. ACTEMRA [Suspect]
     Active Substance: TOCILIZUMAB
     Route: 065
  260. ACTEMRA [Suspect]
     Active Substance: TOCILIZUMAB
     Route: 042
  261. ACTEMRA [Suspect]
     Active Substance: TOCILIZUMAB
     Route: 058
  262. ACTEMRA [Suspect]
     Active Substance: TOCILIZUMAB
     Route: 042
  263. ACTEMRA [Suspect]
     Active Substance: TOCILIZUMAB
     Route: 065
  264. ACTEMRA [Suspect]
     Active Substance: TOCILIZUMAB
     Route: 042
  265. ACTEMRA [Suspect]
     Active Substance: TOCILIZUMAB
     Route: 058
  266. ACTEMRA [Suspect]
     Active Substance: TOCILIZUMAB
     Route: 042
  267. ACTEMRA [Suspect]
     Active Substance: TOCILIZUMAB
     Route: 042
  268. ACTEMRA [Suspect]
     Active Substance: TOCILIZUMAB
     Route: 042
  269. ACTEMRA [Suspect]
     Active Substance: TOCILIZUMAB
     Route: 042
  270. ACTEMRA [Suspect]
     Active Substance: TOCILIZUMAB
     Route: 048
  271. ACTEMRA [Suspect]
     Active Substance: TOCILIZUMAB
     Route: 042
  272. ACTEMRA [Suspect]
     Active Substance: TOCILIZUMAB
     Route: 042
  273. ACTEMRA [Suspect]
     Active Substance: TOCILIZUMAB
     Route: 058
  274. ACTEMRA [Suspect]
     Active Substance: TOCILIZUMAB
     Route: 065
  275. ACTEMRA [Suspect]
     Active Substance: TOCILIZUMAB
     Route: 065
  276. ACTEMRA [Suspect]
     Active Substance: TOCILIZUMAB
     Route: 016
  277. ACTEMRA [Suspect]
     Active Substance: TOCILIZUMAB
     Route: 065
  278. ACTEMRA [Suspect]
     Active Substance: TOCILIZUMAB
     Route: 042
  279. ACTEMRA [Suspect]
     Active Substance: TOCILIZUMAB
     Route: 042
  280. ACTEMRA [Suspect]
     Active Substance: TOCILIZUMAB
     Route: 042
  281. ACTEMRA [Suspect]
     Active Substance: TOCILIZUMAB
     Route: 042
  282. ACTEMRA [Suspect]
     Active Substance: TOCILIZUMAB
     Route: 065
  283. ACTEMRA [Suspect]
     Active Substance: TOCILIZUMAB
     Route: 042
  284. ACTEMRA [Suspect]
     Active Substance: TOCILIZUMAB
     Route: 042
  285. ACTEMRA [Suspect]
     Active Substance: TOCILIZUMAB
     Route: 042
  286. DESOXIMETASONE [Suspect]
     Active Substance: DESOXIMETASONE
     Indication: Rheumatoid arthritis
     Route: 065
  287. DESOXIMETASONE [Suspect]
     Active Substance: DESOXIMETASONE
     Route: 065
  288. DESOXIMETASONE [Suspect]
     Active Substance: DESOXIMETASONE
     Route: 048
  289. DESOXIMETASONE [Suspect]
     Active Substance: DESOXIMETASONE
     Route: 003
  290. DESOXIMETASONE [Suspect]
     Active Substance: DESOXIMETASONE
     Route: 065
  291. DESOXIMETASONE [Suspect]
     Active Substance: DESOXIMETASONE
     Route: 058
  292. DESOXIMETASONE [Suspect]
     Active Substance: DESOXIMETASONE
     Route: 048
  293. DESOXIMETASONE [Suspect]
     Active Substance: DESOXIMETASONE
     Route: 065
  294. DESOXIMETASONE [Suspect]
     Active Substance: DESOXIMETASONE
     Route: 042
  295. DESOXIMETASONE [Suspect]
     Active Substance: DESOXIMETASONE
     Route: 048
  296. DESOXIMETASONE [Suspect]
     Active Substance: DESOXIMETASONE
     Route: 065
  297. DESOXIMETASONE [Suspect]
     Active Substance: DESOXIMETASONE
     Route: 048
  298. DESOXIMETASONE [Suspect]
     Active Substance: DESOXIMETASONE
     Route: 065
  299. DESOXIMETASONE [Suspect]
     Active Substance: DESOXIMETASONE
     Route: 065
  300. DESOXIMETASONE [Suspect]
     Active Substance: DESOXIMETASONE
     Route: 016
  301. DESOXIMETASONE [Suspect]
     Active Substance: DESOXIMETASONE
     Route: 003
  302. DESOXIMETASONE [Suspect]
     Active Substance: DESOXIMETASONE
     Route: 067
  303. DESOXIMETASONE [Suspect]
     Active Substance: DESOXIMETASONE
     Route: 048
  304. DESOXIMETASONE [Suspect]
     Active Substance: DESOXIMETASONE
     Route: 065
  305. PHTHALYLSULFATHIAZOLE [Suspect]
     Active Substance: PHTHALYLSULFATHIAZOLE
     Indication: Rheumatoid arthritis
     Route: 065
  306. PHTHALYLSULFATHIAZOLE [Suspect]
     Active Substance: PHTHALYLSULFATHIAZOLE
     Route: 065
  307. PHTHALYLSULFATHIAZOLE [Suspect]
     Active Substance: PHTHALYLSULFATHIAZOLE
     Route: 048
  308. PHTHALYLSULFATHIAZOLE [Suspect]
     Active Substance: PHTHALYLSULFATHIAZOLE
     Route: 067
  309. PHTHALYLSULFATHIAZOLE [Suspect]
     Active Substance: PHTHALYLSULFATHIAZOLE
     Route: 042
  310. PHTHALYLSULFATHIAZOLE [Suspect]
     Active Substance: PHTHALYLSULFATHIAZOLE
     Route: 048
  311. PHTHALYLSULFATHIAZOLE [Suspect]
     Active Substance: PHTHALYLSULFATHIAZOLE
     Route: 065
  312. PHTHALYLSULFATHIAZOLE [Suspect]
     Active Substance: PHTHALYLSULFATHIAZOLE
     Route: 048
  313. PHTHALYLSULFATHIAZOLE [Suspect]
     Active Substance: PHTHALYLSULFATHIAZOLE
     Route: 048
  314. PHTHALYLSULFATHIAZOLE [Suspect]
     Active Substance: PHTHALYLSULFATHIAZOLE
     Route: 048
  315. PHTHALYLSULFATHIAZOLE [Suspect]
     Active Substance: PHTHALYLSULFATHIAZOLE
     Route: 048
  316. PHTHALYLSULFATHIAZOLE [Suspect]
     Active Substance: PHTHALYLSULFATHIAZOLE
     Route: 016
  317. PHTHALYLSULFATHIAZOLE [Suspect]
     Active Substance: PHTHALYLSULFATHIAZOLE
     Route: 005
  318. PHTHALYLSULFATHIAZOLE [Suspect]
     Active Substance: PHTHALYLSULFATHIAZOLE
     Route: 065
  319. PHTHALYLSULFATHIAZOLE [Suspect]
     Active Substance: PHTHALYLSULFATHIAZOLE
     Route: 065
  320. PHTHALYLSULFATHIAZOLE [Suspect]
     Active Substance: PHTHALYLSULFATHIAZOLE
     Dosage: 2000 MG, QD (1000 MG, BID)
     Route: 065
  321. PHTHALYLSULFATHIAZOLE [Suspect]
     Active Substance: PHTHALYLSULFATHIAZOLE
     Route: 058
  322. PHTHALYLSULFATHIAZOLE [Suspect]
     Active Substance: PHTHALYLSULFATHIAZOLE
     Route: 065
  323. HYDROXYCHLOROQUINE [Suspect]
     Active Substance: HYDROXYCHLOROQUINE
     Indication: Systemic lupus erythematosus
     Route: 065
  324. HYDROXYCHLOROQUINE [Suspect]
     Active Substance: HYDROXYCHLOROQUINE
     Indication: Rheumatoid arthritis
     Route: 048
  325. HYDROXYCHLOROQUINE [Suspect]
     Active Substance: HYDROXYCHLOROQUINE
     Route: 065
  326. HYDROXYCHLOROQUINE [Suspect]
     Active Substance: HYDROXYCHLOROQUINE
     Route: 048
  327. HYDROXYCHLOROQUINE [Suspect]
     Active Substance: HYDROXYCHLOROQUINE
     Route: 048
  328. HYDROXYCHLOROQUINE [Suspect]
     Active Substance: HYDROXYCHLOROQUINE
     Route: 048
  329. HYDROXYCHLOROQUINE [Suspect]
     Active Substance: HYDROXYCHLOROQUINE
     Route: 065
  330. HYDROXYCHLOROQUINE [Suspect]
     Active Substance: HYDROXYCHLOROQUINE
     Route: 048
  331. HYDROXYCHLOROQUINE [Suspect]
     Active Substance: HYDROXYCHLOROQUINE
     Route: 048
  332. HYDROXYCHLOROQUINE [Suspect]
     Active Substance: HYDROXYCHLOROQUINE
     Route: 065
  333. HYDROXYCHLOROQUINE [Suspect]
     Active Substance: HYDROXYCHLOROQUINE
     Route: 048
  334. HYDROXYCHLOROQUINE [Suspect]
     Active Substance: HYDROXYCHLOROQUINE
     Route: 065
  335. HYDROXYCHLOROQUINE [Suspect]
     Active Substance: HYDROXYCHLOROQUINE
     Route: 065
  336. HYDROXYCHLOROQUINE [Suspect]
     Active Substance: HYDROXYCHLOROQUINE
     Route: 048
  337. HYDROXYCHLOROQUINE [Suspect]
     Active Substance: HYDROXYCHLOROQUINE
     Route: 048
  338. HYDROXYCHLOROQUINE [Suspect]
     Active Substance: HYDROXYCHLOROQUINE
     Route: 065
  339. HYDROXYCHLOROQUINE [Suspect]
     Active Substance: HYDROXYCHLOROQUINE
     Route: 048
  340. HYDROXYCHLOROQUINE [Suspect]
     Active Substance: HYDROXYCHLOROQUINE
     Route: 065
  341. HYDROXYCHLOROQUINE [Suspect]
     Active Substance: HYDROXYCHLOROQUINE
     Route: 066
  342. HYDROXYCHLOROQUINE [Suspect]
     Active Substance: HYDROXYCHLOROQUINE
     Route: 005
  343. HYDROXYCHLOROQUINE [Suspect]
     Active Substance: HYDROXYCHLOROQUINE
     Route: 058
  344. HYDROXYCHLOROQUINE [Suspect]
     Active Substance: HYDROXYCHLOROQUINE
     Route: 048
  345. HYDROXYCHLOROQUINE [Suspect]
     Active Substance: HYDROXYCHLOROQUINE
     Route: 048
  346. HYDROXYCHLOROQUINE [Suspect]
     Active Substance: HYDROXYCHLOROQUINE
     Route: 066
  347. HYDROXYCHLOROQUINE [Suspect]
     Active Substance: HYDROXYCHLOROQUINE
     Route: 066
  348. HYDROXYCHLOROQUINE [Suspect]
     Active Substance: HYDROXYCHLOROQUINE
     Route: 016
  349. PANTOPRAZOLE SODIUM ANHYDROUS [Concomitant]
     Active Substance: PANTOPRAZOLE SODIUM ANHYDROUS
     Indication: Product used for unknown indication
  350. PREDNISOLONE [Concomitant]
     Active Substance: PREDNISOLONE
     Indication: Product used for unknown indication
  351. COSENTYX [Concomitant]
     Active Substance: SECUKINUMAB
     Indication: Product used for unknown indication
  352. ALENDRONIC ACID [Suspect]
     Active Substance: ALENDRONIC ACID
     Indication: Rheumatoid arthritis
     Route: 048
  353. ALENDRONIC ACID [Suspect]
     Active Substance: ALENDRONIC ACID
     Route: 065
  354. ALENDRONIC ACID [Suspect]
     Active Substance: ALENDRONIC ACID
     Route: 016
  355. ALENDRONIC ACID [Suspect]
     Active Substance: ALENDRONIC ACID
     Route: 048
  356. ALENDRONIC ACID [Suspect]
     Active Substance: ALENDRONIC ACID
     Route: 058
  357. ALENDRONIC ACID [Suspect]
     Active Substance: ALENDRONIC ACID
     Route: 048
  358. ALENDRONIC ACID [Suspect]
     Active Substance: ALENDRONIC ACID
     Route: 065
  359. ALENDRONIC ACID [Suspect]
     Active Substance: ALENDRONIC ACID
     Route: 048
  360. ALENDRONIC ACID [Suspect]
     Active Substance: ALENDRONIC ACID
     Route: 016
  361. ERELZI [Suspect]
     Active Substance: ETANERCEPT-SZZS
     Indication: Rheumatoid arthritis
     Route: 065
  362. ERELZI [Suspect]
     Active Substance: ETANERCEPT-SZZS
     Route: 058
  363. ERELZI [Suspect]
     Active Substance: ETANERCEPT-SZZS
     Route: 058
  364. ERELZI [Suspect]
     Active Substance: ETANERCEPT-SZZS
     Route: 058
  365. ERELZI [Suspect]
     Active Substance: ETANERCEPT-SZZS
     Route: 065
  366. REMICADE [Suspect]
     Active Substance: INFLIXIMAB
     Indication: Rheumatoid arthritis
     Route: 042
  367. REMICADE [Suspect]
     Active Substance: INFLIXIMAB
     Indication: Psoriatic arthropathy
     Route: 042
  368. REMICADE [Suspect]
     Active Substance: INFLIXIMAB
     Indication: Psoriasis
     Route: 065
  369. REMICADE [Suspect]
     Active Substance: INFLIXIMAB
     Indication: Crohn^s disease
     Route: 042
  370. REMICADE [Suspect]
     Active Substance: INFLIXIMAB
     Indication: Ankylosing spondylitis
     Route: 042
  371. REMICADE [Suspect]
     Active Substance: INFLIXIMAB
     Route: 065
  372. REMICADE [Suspect]
     Active Substance: INFLIXIMAB
     Route: 042
  373. REMICADE [Suspect]
     Active Substance: INFLIXIMAB
     Route: 065
  374. REMICADE [Suspect]
     Active Substance: INFLIXIMAB
     Route: 042
  375. CIMZIA [Suspect]
     Active Substance: CERTOLIZUMAB PEGOL
     Indication: Rheumatoid arthritis
     Route: 058
  376. CIMZIA [Suspect]
     Active Substance: CERTOLIZUMAB PEGOL
     Indication: Psoriatic arthropathy
     Route: 058
  377. CIMZIA [Suspect]
     Active Substance: CERTOLIZUMAB PEGOL
     Indication: Psoriasis
     Route: 042
  378. CIMZIA [Suspect]
     Active Substance: CERTOLIZUMAB PEGOL
     Route: 065
  379. CIMZIA [Suspect]
     Active Substance: CERTOLIZUMAB PEGOL
     Route: 005
  380. CIMZIA [Suspect]
     Active Substance: CERTOLIZUMAB PEGOL
     Route: 058
  381. CIMZIA [Suspect]
     Active Substance: CERTOLIZUMAB PEGOL
     Route: 058
  382. CIMZIA [Suspect]
     Active Substance: CERTOLIZUMAB PEGOL
     Route: 058
  383. CIMZIA [Suspect]
     Active Substance: CERTOLIZUMAB PEGOL
     Route: 058
  384. CIMZIA [Suspect]
     Active Substance: CERTOLIZUMAB PEGOL
     Route: 058
  385. ISOPROPYL ALCOHOL [Suspect]
     Active Substance: ISOPROPYL ALCOHOL
     Indication: Product used for unknown indication
     Route: 065
  386. ISOPROPYL ALCOHOL [Suspect]
     Active Substance: ISOPROPYL ALCOHOL
     Route: 065
  387. ISOPROPYL ALCOHOL [Suspect]
     Active Substance: ISOPROPYL ALCOHOL
     Route: 048
  388. ISOPROPYL ALCOHOL [Suspect]
     Active Substance: ISOPROPYL ALCOHOL
     Route: 065
  389. ISOPROPYL ALCOHOL [Suspect]
     Active Substance: ISOPROPYL ALCOHOL
     Route: 065
  390. SIMPONI [Suspect]
     Active Substance: GOLIMUMAB
     Indication: Rheumatoid arthritis
     Route: 058
  391. SIMPONI [Suspect]
     Active Substance: GOLIMUMAB
     Indication: Psoriatic arthropathy
     Route: 058
  392. SIMPONI [Suspect]
     Active Substance: GOLIMUMAB
     Route: 065
  393. SIMPONI [Suspect]
     Active Substance: GOLIMUMAB
     Route: 048
  394. SIMPONI [Suspect]
     Active Substance: GOLIMUMAB
     Route: 058
  395. SIMPONI [Suspect]
     Active Substance: GOLIMUMAB
     Route: 042
  396. ARAVA [Suspect]
     Active Substance: LEFLUNOMIDE
     Indication: Rheumatoid arthritis
     Route: 048
  397. ARAVA [Suspect]
     Active Substance: LEFLUNOMIDE
     Indication: Condition aggravated
     Route: 065
  398. ARAVA [Suspect]
     Active Substance: LEFLUNOMIDE
     Route: 048
  399. ARAVA [Suspect]
     Active Substance: LEFLUNOMIDE
     Route: 048
  400. ARAVA [Suspect]
     Active Substance: LEFLUNOMIDE
     Route: 065
  401. ARAVA [Suspect]
     Active Substance: LEFLUNOMIDE
     Route: 065
  402. ARAVA [Suspect]
     Active Substance: LEFLUNOMIDE
     Route: 005
  403. ARAVA [Suspect]
     Active Substance: LEFLUNOMIDE
     Route: 048
  404. ARAVA [Suspect]
     Active Substance: LEFLUNOMIDE
     Route: 065
  405. ARAVA [Suspect]
     Active Substance: LEFLUNOMIDE
     Route: 065
  406. PLAQUENIL [Suspect]
     Active Substance: HYDROXYCHLOROQUINE SULFATE
     Indication: Rheumatoid arthritis
     Route: 048
  407. PLAQUENIL [Suspect]
     Active Substance: HYDROXYCHLOROQUINE SULFATE
     Route: 048
  408. PLAQUENIL [Suspect]
     Active Substance: HYDROXYCHLOROQUINE SULFATE
     Route: 048
  409. PLAQUENIL [Suspect]
     Active Substance: HYDROXYCHLOROQUINE SULFATE
     Route: 005
  410. PLAQUENIL [Suspect]
     Active Substance: HYDROXYCHLOROQUINE SULFATE
     Route: 065
  411. FOLIC ACID [Suspect]
     Active Substance: FOLIC ACID
     Indication: Rheumatoid arthritis
     Route: 065
  412. FOSAMAX [Suspect]
     Active Substance: ALENDRONATE SODIUM
     Indication: Rheumatoid arthritis
     Route: 048
  413. FOSAMAX [Suspect]
     Active Substance: ALENDRONATE SODIUM
     Route: 048
  414. FOSAMAX [Suspect]
     Active Substance: ALENDRONATE SODIUM
     Route: 065
  415. FOSAMAX [Suspect]
     Active Substance: ALENDRONATE SODIUM
     Route: 016
  416. FOSAMAX [Suspect]
     Active Substance: ALENDRONATE SODIUM
     Route: 005
  417. FOSAMAX [Suspect]
     Active Substance: ALENDRONATE SODIUM
     Route: 065
  418. FOSAMAX [Suspect]
     Active Substance: ALENDRONATE SODIUM
     Route: 058
  419. FOSAMAX [Suspect]
     Active Substance: ALENDRONATE SODIUM
     Route: 048
  420. TOPICORT [Suspect]
     Active Substance: DESOXIMETASONE
     Indication: Rheumatoid arthritis
     Route: 065
  421. TOPICORT [Suspect]
     Active Substance: DESOXIMETASONE
     Route: 058
  422. TOPICORT [Suspect]
     Active Substance: DESOXIMETASONE
     Route: 048
  423. TOPICORT [Suspect]
     Active Substance: DESOXIMETASONE
     Route: 003
  424. TOPICORT [Suspect]
     Active Substance: DESOXIMETASONE
     Route: 065
  425. TOPICORT [Suspect]
     Active Substance: DESOXIMETASONE
     Route: 048
  426. HYDROXYCHLOROQUINE SULFATE [Suspect]
     Active Substance: HYDROXYCHLOROQUINE SULFATE
     Indication: Rheumatoid arthritis
     Route: 065
  427. LYRICA [Suspect]
     Active Substance: PREGABALIN
     Indication: Rheumatoid arthritis
  428. LYRICA [Suspect]
     Active Substance: PREGABALIN
     Route: 048
  429. CALCIUM GLUBIONATE [Suspect]
     Active Substance: CALCIUM GLUBIONATE
     Indication: Product used for unknown indication
     Route: 065
  430. CALCIUM GLUBIONATE [Suspect]
     Active Substance: CALCIUM GLUBIONATE
     Route: 016
  431. CHLORHEXIDINE GLUCONATE\ISOPROPYL ALCOHOL [Suspect]
     Active Substance: CHLORHEXIDINE GLUCONATE\ISOPROPYL ALCOHOL
     Indication: Product used for unknown indication
     Route: 065
  432. CHLORHEXIDINE GLUCONATE\ISOPROPYL ALCOHOL [Suspect]
     Active Substance: CHLORHEXIDINE GLUCONATE\ISOPROPYL ALCOHOL
     Route: 048
  433. CHLORHEXIDINE GLUCONATE\ISOPROPYL ALCOHOL [Suspect]
     Active Substance: CHLORHEXIDINE GLUCONATE\ISOPROPYL ALCOHOL
     Route: 065
  434. CHLORHEXIDINE GLUCONATE\ISOPROPYL ALCOHOL [Suspect]
     Active Substance: CHLORHEXIDINE GLUCONATE\ISOPROPYL ALCOHOL
     Route: 048
  435. DOXYCYCLINE [Suspect]
     Active Substance: DOXYCYCLINE
     Indication: Rheumatoid arthritis
     Route: 065
  436. DOXYCYCLINE [Suspect]
     Active Substance: DOXYCYCLINE
     Route: 005
  437. DOXYCYCLINE [Suspect]
     Active Substance: DOXYCYCLINE
     Route: 065
  438. FLUMETHASONE PIVALATE [Suspect]
     Active Substance: FLUMETHASONE PIVALATE
     Indication: Product used for unknown indication
     Route: 065
  439. FLUMETHASONE PIVALATE [Suspect]
     Active Substance: FLUMETHASONE PIVALATE
     Indication: Rheumatoid arthritis
  440. ALENDRONATE SODIUM\CHOLECALCIFEROL [Suspect]
     Active Substance: ALENDRONATE SODIUM\CHOLECALCIFEROL
     Indication: Rheumatoid arthritis
     Route: 065
  441. ALENDRONATE SODIUM\CHOLECALCIFEROL [Suspect]
     Active Substance: ALENDRONATE SODIUM\CHOLECALCIFEROL
     Route: 048
  442. ALENDRONATE SODIUM\CHOLECALCIFEROL [Suspect]
     Active Substance: ALENDRONATE SODIUM\CHOLECALCIFEROL
     Route: 058
  443. ASACOL [Suspect]
     Active Substance: MESALAMINE
     Indication: Product used for unknown indication
     Route: 065
  444. BORAGE OIL [Suspect]
     Active Substance: BORAGE OIL
     Indication: Product used for unknown indication
     Route: 065
  445. CETRIMIDE [Suspect]
     Active Substance: CETRIMIDE
     Indication: Product used for unknown indication
     Route: 065
  446. HYDROCORTISONE BUTYRATE [Suspect]
     Active Substance: HYDROCORTISONE BUTYRATE
     Indication: Rheumatoid arthritis
     Route: 065
  447. HYDROCORTISONE BUTYRATE [Suspect]
     Active Substance: HYDROCORTISONE BUTYRATE
     Route: 058
  448. HYDROCORTISONE BUTYRATE [Suspect]
     Active Substance: HYDROCORTISONE BUTYRATE
     Route: 048
  449. HYDROCORTISONE BUTYRATE [Suspect]
     Active Substance: HYDROCORTISONE BUTYRATE
     Route: 050
  450. SULFASALAZINE [Suspect]
     Active Substance: SULFASALAZINE
     Indication: Product used for unknown indication
     Dosage: 2000 MG, QD (1000MG, BID)
     Route: 048
  451. SULFASALAZINE [Suspect]
     Active Substance: SULFASALAZINE
     Route: 048
  452. SULFASALAZINE [Suspect]
     Active Substance: SULFASALAZINE
     Route: 048
  453. SULFASALAZINE [Suspect]
     Active Substance: SULFASALAZINE
     Route: 048
  454. SULFASALAZINE [Suspect]
     Active Substance: SULFASALAZINE
     Route: 048
  455. SULFASALAZINE [Suspect]
     Active Substance: SULFASALAZINE
     Route: 065
  456. SULFASALAZINE [Suspect]
     Active Substance: SULFASALAZINE
     Route: 048
  457. SULFASALAZINE [Suspect]
     Active Substance: SULFASALAZINE
     Route: 065
  458. SULFASALAZINE [Suspect]
     Active Substance: SULFASALAZINE
     Route: 065
  459. SULFASALAZINE [Suspect]
     Active Substance: SULFASALAZINE
     Route: 048
  460. SULFASALAZINE [Suspect]
     Active Substance: SULFASALAZINE
     Route: 065
  461. SULFASALAZINE [Suspect]
     Active Substance: SULFASALAZINE
     Route: 058
  462. SULFASALAZINE [Suspect]
     Active Substance: SULFASALAZINE
     Dosage: 4000 MG, QD, (2000 MILLIGRAM, BID); ORAL USE
     Route: 048
  463. SULFASALAZINE [Suspect]
     Active Substance: SULFASALAZINE
     Route: 065
  464. SULFASALAZINE [Suspect]
     Active Substance: SULFASALAZINE
     Route: 065
  465. SULFASALAZINE [Suspect]
     Active Substance: SULFASALAZINE
     Route: 048
  466. SULFASALAZINE [Suspect]
     Active Substance: SULFASALAZINE
     Route: 048
  467. SULFASALAZINE [Suspect]
     Active Substance: SULFASALAZINE
     Route: 065
  468. SULFASALAZINE [Suspect]
     Active Substance: SULFASALAZINE
     Route: 048
  469. SULFASALAZINE [Suspect]
     Active Substance: SULFASALAZINE
     Route: 058
  470. SULFASALAZINE [Suspect]
     Active Substance: SULFASALAZINE
     Route: 048
  471. SULFASALAZINE [Suspect]
     Active Substance: SULFASALAZINE
     Route: 048
  472. SULFASALAZINE [Suspect]
     Active Substance: SULFASALAZINE
     Route: 048
  473. SULFASALAZINE [Suspect]
     Active Substance: SULFASALAZINE
     Dosage: 2 DOSAGE FORM, QD (1 DOSAGE FORM, BID);
     Route: 065
  474. SULFASALAZINE [Suspect]
     Active Substance: SULFASALAZINE
     Route: 065
  475. SULFASALAZINE [Suspect]
     Active Substance: SULFASALAZINE
     Route: 065
  476. SULFASALAZINE [Suspect]
     Active Substance: SULFASALAZINE
     Route: 065
  477. SULFASALAZINE [Suspect]
     Active Substance: SULFASALAZINE
     Dosage: 2000 MG, QD (1000 MILLIGRAM, BID); UNKNOWN
     Route: 065
  478. SULFASALAZINE [Suspect]
     Active Substance: SULFASALAZINE
     Route: 065
  479. SULFASALAZINE [Suspect]
     Active Substance: SULFASALAZINE
     Route: 065
  480. SULFASALAZINE [Suspect]
     Active Substance: SULFASALAZINE
     Route: 048
  481. SULFASALAZINE [Suspect]
     Active Substance: SULFASALAZINE
     Route: 065
  482. SULFASALAZINE [Suspect]
     Active Substance: SULFASALAZINE
     Route: 065
  483. SULFASALAZINE [Suspect]
     Active Substance: SULFASALAZINE
     Route: 065
  484. SULFASALAZINE [Suspect]
     Active Substance: SULFASALAZINE
     Route: 048
  485. ORENCIA [Suspect]
     Active Substance: ABATACEPT
     Indication: Rheumatoid arthritis
     Route: 042
  486. ORENCIA [Suspect]
     Active Substance: ABATACEPT
     Route: 042
  487. ORENCIA [Suspect]
     Active Substance: ABATACEPT
     Route: 058
  488. ORENCIA [Suspect]
     Active Substance: ABATACEPT
     Route: 058
  489. ORENCIA [Suspect]
     Active Substance: ABATACEPT
     Route: 015
  490. ORENCIA [Suspect]
     Active Substance: ABATACEPT
     Route: 058
  491. ORENCIA [Suspect]
     Active Substance: ABATACEPT
     Route: 058
  492. ORENCIA [Suspect]
     Active Substance: ABATACEPT
     Route: 042
  493. ORENCIA [Suspect]
     Active Substance: ABATACEPT
     Route: 058
  494. ORENCIA [Suspect]
     Active Substance: ABATACEPT
     Route: 058
  495. ORENCIA [Suspect]
     Active Substance: ABATACEPT
     Route: 058
  496. ORENCIA [Suspect]
     Active Substance: ABATACEPT
     Route: 067
  497. ORENCIA [Suspect]
     Active Substance: ABATACEPT
     Route: 065
  498. ORENCIA [Suspect]
     Active Substance: ABATACEPT
     Route: 053
  499. ORENCIA [Suspect]
     Active Substance: ABATACEPT
     Route: 042
  500. ORENCIA [Suspect]
     Active Substance: ABATACEPT
     Route: 065
  501. ORENCIA [Suspect]
     Active Substance: ABATACEPT
     Route: 065
  502. METHOTREXATE SODIUM [Suspect]
     Active Substance: METHOTREXATE SODIUM
     Indication: Rheumatoid arthritis
     Route: 048
  503. METHOTREXATE SODIUM [Suspect]
     Active Substance: METHOTREXATE SODIUM
     Route: 048
  504. METHOTREXATE SODIUM [Suspect]
     Active Substance: METHOTREXATE SODIUM
     Route: 065
  505. METHOTREXATE SODIUM [Suspect]
     Active Substance: METHOTREXATE SODIUM
     Route: 048
  506. METHOTREXATE SODIUM [Suspect]
     Active Substance: METHOTREXATE SODIUM
     Route: 065
  507. METHOTREXATE SODIUM [Suspect]
     Active Substance: METHOTREXATE SODIUM
     Route: 058
  508. METHOTREXATE SODIUM [Suspect]
     Active Substance: METHOTREXATE SODIUM
     Route: 048
  509. METHOTREXATE SODIUM [Suspect]
     Active Substance: METHOTREXATE SODIUM
     Route: 048
  510. METHOTREXATE SODIUM [Suspect]
     Active Substance: METHOTREXATE SODIUM
     Route: 013
  511. METHOTREXATE SODIUM [Suspect]
     Active Substance: METHOTREXATE SODIUM
     Route: 013
  512. METHOTREXATE SODIUM [Suspect]
     Active Substance: METHOTREXATE SODIUM
     Route: 048
  513. METHOTREXATE SODIUM [Suspect]
     Active Substance: METHOTREXATE SODIUM
     Route: 058
  514. METHOTREXATE SODIUM [Suspect]
     Active Substance: METHOTREXATE SODIUM
     Route: 048
  515. METHOTREXATE SODIUM [Suspect]
     Active Substance: METHOTREXATE SODIUM
     Route: 048
  516. METHOTREXATE SODIUM [Suspect]
     Active Substance: METHOTREXATE SODIUM
     Route: 065
  517. METHOTREXATE SODIUM [Suspect]
     Active Substance: METHOTREXATE SODIUM
     Route: 048
  518. METHOTREXATE SODIUM [Suspect]
     Active Substance: METHOTREXATE SODIUM
     Route: 048
  519. METHOTREXATE SODIUM [Suspect]
     Active Substance: METHOTREXATE SODIUM
     Route: 065
  520. METHOTREXATE SODIUM [Suspect]
     Active Substance: METHOTREXATE SODIUM
     Route: 065
  521. METHOTREXATE SODIUM [Suspect]
     Active Substance: METHOTREXATE SODIUM
     Route: 065
  522. METHOTREXATE SODIUM [Suspect]
     Active Substance: METHOTREXATE SODIUM
     Route: 065
  523. METHOTREXATE SODIUM [Suspect]
     Active Substance: METHOTREXATE SODIUM
     Route: 042
  524. METHOTREXATE SODIUM [Suspect]
     Active Substance: METHOTREXATE SODIUM
     Route: 048
  525. METHOTREXATE SODIUM [Suspect]
     Active Substance: METHOTREXATE SODIUM
     Route: 048
  526. METHOTREXATE SODIUM [Suspect]
     Active Substance: METHOTREXATE SODIUM
     Route: 065
  527. METHOTREXATE SODIUM [Suspect]
     Active Substance: METHOTREXATE SODIUM
     Route: 048
  528. METHOTREXATE SODIUM [Suspect]
     Active Substance: METHOTREXATE SODIUM
     Route: 058
  529. METHOTREXATE SODIUM [Suspect]
     Active Substance: METHOTREXATE SODIUM
     Route: 013
  530. METHOTREXATE SODIUM [Suspect]
     Active Substance: METHOTREXATE SODIUM
     Route: 048
  531. METHOTREXATE SODIUM [Suspect]
     Active Substance: METHOTREXATE SODIUM
     Route: 058
  532. METHOTREXATE SODIUM [Suspect]
     Active Substance: METHOTREXATE SODIUM
     Route: 013
  533. METHOTREXATE SODIUM [Suspect]
     Active Substance: METHOTREXATE SODIUM
     Route: 065
  534. METHOTREXATE SODIUM [Suspect]
     Active Substance: METHOTREXATE SODIUM
     Route: 013
  535. CELEBREX [Suspect]
     Active Substance: CELECOXIB
     Indication: Arthritis
     Route: 065
  536. CELEBREX [Suspect]
     Active Substance: CELECOXIB
     Indication: Rheumatoid arthritis
     Route: 065
  537. CELEBREX [Suspect]
     Active Substance: CELECOXIB
     Indication: Off label use
     Route: 048
  538. CELEBREX [Suspect]
     Active Substance: CELECOXIB
     Route: 065
  539. CELEBREX [Suspect]
     Active Substance: CELECOXIB
     Route: 048
  540. CELEBREX [Suspect]
     Active Substance: CELECOXIB
     Route: 065
  541. CELEBREX [Suspect]
     Active Substance: CELECOXIB
     Route: 048
  542. CELEBREX [Suspect]
     Active Substance: CELECOXIB
     Route: 048
  543. CELEBREX [Suspect]
     Active Substance: CELECOXIB
     Route: 048
  544. CELEBREX [Suspect]
     Active Substance: CELECOXIB
     Route: 065
  545. CELEBREX [Suspect]
     Active Substance: CELECOXIB
     Route: 048
  546. CELEBREX [Suspect]
     Active Substance: CELECOXIB
     Route: 048
  547. FOLIC ACID [Suspect]
     Active Substance: FOLIC ACID
     Indication: Rheumatoid arthritis
     Route: 065
  548. FOLIC ACID [Suspect]
     Active Substance: FOLIC ACID
     Route: 065
  549. FOLIC ACID [Suspect]
     Active Substance: FOLIC ACID
     Route: 065
  550. FOLIC ACID [Suspect]
     Active Substance: FOLIC ACID
     Route: 065
  551. FOLIC ACID [Suspect]
     Active Substance: FOLIC ACID
     Route: 048
  552. FOLIC ACID [Suspect]
     Active Substance: FOLIC ACID
     Route: 065
  553. FOLIC ACID [Suspect]
     Active Substance: FOLIC ACID
     Route: 058
  554. FOLIC ACID [Suspect]
     Active Substance: FOLIC ACID
     Route: 065
  555. FOLIC ACID [Suspect]
     Active Substance: FOLIC ACID
     Route: 058
  556. FOLIC ACID [Suspect]
     Active Substance: FOLIC ACID
     Route: 016
  557. FOLIC ACID [Suspect]
     Active Substance: FOLIC ACID
     Route: 048
  558. FOLIC ACID [Suspect]
     Active Substance: FOLIC ACID
     Route: 058
  559. FOLIC ACID [Suspect]
     Active Substance: FOLIC ACID
     Route: 065
  560. FOLIC ACID [Suspect]
     Active Substance: FOLIC ACID
     Route: 065
  561. FOLIC ACID [Suspect]
     Active Substance: FOLIC ACID
     Route: 048
  562. FOLIC ACID [Suspect]
     Active Substance: FOLIC ACID
     Route: 065
  563. FOLIC ACID [Suspect]
     Active Substance: FOLIC ACID
     Route: 049
  564. FOLIC ACID [Suspect]
     Active Substance: FOLIC ACID
     Route: 048
  565. FOLIC ACID [Suspect]
     Active Substance: FOLIC ACID
     Route: 058
  566. FOLIC ACID [Suspect]
     Active Substance: FOLIC ACID
     Route: 048
  567. FOLIC ACID [Suspect]
     Active Substance: FOLIC ACID
     Route: 058
  568. FOLIC ACID [Suspect]
     Active Substance: FOLIC ACID
     Route: 058
  569. FOLIC ACID [Suspect]
     Active Substance: FOLIC ACID
     Route: 058
  570. FOLIC ACID [Suspect]
     Active Substance: FOLIC ACID
     Route: 016
  571. TOCILIZUMAB [Suspect]
     Active Substance: TOCILIZUMAB
     Indication: Rheumatoid arthritis
     Route: 016
  572. TOCILIZUMAB [Suspect]
     Active Substance: TOCILIZUMAB
     Route: 016
  573. TOCILIZUMAB [Suspect]
     Active Substance: TOCILIZUMAB
     Route: 058
  574. TOCILIZUMAB [Suspect]
     Active Substance: TOCILIZUMAB
     Route: 058
  575. TOCILIZUMAB [Suspect]
     Active Substance: TOCILIZUMAB
     Route: 058
  576. TOCILIZUMAB [Suspect]
     Active Substance: TOCILIZUMAB
     Route: 058
  577. TOCILIZUMAB [Suspect]
     Active Substance: TOCILIZUMAB
     Route: 042
  578. TOCILIZUMAB [Suspect]
     Active Substance: TOCILIZUMAB
     Route: 048
  579. TOCILIZUMAB [Suspect]
     Active Substance: TOCILIZUMAB
     Route: 042
  580. TOCILIZUMAB [Suspect]
     Active Substance: TOCILIZUMAB
     Route: 042
  581. TOCILIZUMAB [Suspect]
     Active Substance: TOCILIZUMAB
     Route: 042
  582. TOCILIZUMAB [Suspect]
     Active Substance: TOCILIZUMAB
     Route: 058
  583. TOCILIZUMAB [Suspect]
     Active Substance: TOCILIZUMAB
     Route: 065
  584. TOCILIZUMAB [Suspect]
     Active Substance: TOCILIZUMAB
     Route: 042
  585. HYDROXYCHLOROQUINE SULFATE [Suspect]
     Active Substance: HYDROXYCHLOROQUINE SULFATE
     Indication: Rheumatoid arthritis
     Route: 065
  586. HYDROXYCHLOROQUINE SULFATE [Suspect]
     Active Substance: HYDROXYCHLOROQUINE SULFATE
     Indication: Systemic lupus erythematosus
     Route: 065
  587. HYDROXYCHLOROQUINE SULFATE [Suspect]
     Active Substance: HYDROXYCHLOROQUINE SULFATE
     Route: 048
  588. HYDROXYCHLOROQUINE SULFATE [Suspect]
     Active Substance: HYDROXYCHLOROQUINE SULFATE
     Route: 048
  589. HYDROXYCHLOROQUINE SULFATE [Suspect]
     Active Substance: HYDROXYCHLOROQUINE SULFATE
     Route: 049
  590. HYDROXYCHLOROQUINE SULFATE [Suspect]
     Active Substance: HYDROXYCHLOROQUINE SULFATE
     Route: 050
  591. HYDROXYCHLOROQUINE SULFATE [Suspect]
     Active Substance: HYDROXYCHLOROQUINE SULFATE
     Route: 048
  592. HYDROXYCHLOROQUINE SULFATE [Suspect]
     Active Substance: HYDROXYCHLOROQUINE SULFATE
     Route: 048
  593. HYDROXYCHLOROQUINE SULFATE [Suspect]
     Active Substance: HYDROXYCHLOROQUINE SULFATE
     Route: 016
  594. HYDROXYCHLOROQUINE SULFATE [Suspect]
     Active Substance: HYDROXYCHLOROQUINE SULFATE
     Route: 065
  595. HYDROXYCHLOROQUINE SULFATE [Suspect]
     Active Substance: HYDROXYCHLOROQUINE SULFATE
     Route: 065
  596. HYDROXYCHLOROQUINE SULFATE [Suspect]
     Active Substance: HYDROXYCHLOROQUINE SULFATE
     Route: 058
  597. HYDROXYCHLOROQUINE SULFATE [Suspect]
     Active Substance: HYDROXYCHLOROQUINE SULFATE
     Route: 065
  598. HYDROXYCHLOROQUINE SULFATE [Suspect]
     Active Substance: HYDROXYCHLOROQUINE SULFATE
     Route: 048
  599. HYDROXYCHLOROQUINE SULFATE [Suspect]
     Active Substance: HYDROXYCHLOROQUINE SULFATE
     Route: 065
  600. XELJANZ [Suspect]
     Active Substance: TOFACITINIB CITRATE
     Indication: Rheumatoid arthritis
     Route: 048
  601. XELJANZ [Suspect]
     Active Substance: TOFACITINIB CITRATE
     Route: 048
  602. XELJANZ [Suspect]
     Active Substance: TOFACITINIB CITRATE
     Route: 048
  603. XELJANZ [Suspect]
     Active Substance: TOFACITINIB CITRATE
     Route: 065
  604. XELJANZ [Suspect]
     Active Substance: TOFACITINIB CITRATE
     Route: 048
  605. XELJANZ [Suspect]
     Active Substance: TOFACITINIB CITRATE
     Route: 048
  606. XELJANZ [Suspect]
     Active Substance: TOFACITINIB CITRATE
     Route: 065
  607. XELJANZ [Suspect]
     Active Substance: TOFACITINIB CITRATE
     Route: 065
  608. XELJANZ [Suspect]
     Active Substance: TOFACITINIB CITRATE
     Route: 065
  609. XELJANZ [Suspect]
     Active Substance: TOFACITINIB CITRATE
     Route: 065
  610. XELJANZ [Suspect]
     Active Substance: TOFACITINIB CITRATE
     Dosage: 10 MG, QD (5 MILLIGRAM,12 HR)
     Route: 048
  611. XELJANZ [Suspect]
     Active Substance: TOFACITINIB CITRATE
     Route: 065
  612. XELJANZ [Suspect]
     Active Substance: TOFACITINIB CITRATE
     Route: 065
  613. XELJANZ [Suspect]
     Active Substance: TOFACITINIB CITRATE
     Route: 048

REACTIONS (25)
  - Breast cancer stage III [Fatal]
  - Drug-induced liver injury [Fatal]
  - Autoimmune disorder [Fatal]
  - Dyspnoea [Fatal]
  - Discomfort [Fatal]
  - Blepharospasm [Fatal]
  - Anti-cyclic citrullinated peptide antibody positive [Fatal]
  - Blister [Fatal]
  - Drug intolerance [Fatal]
  - Drug ineffective [Fatal]
  - Dizziness [Fatal]
  - Colitis ulcerative [Fatal]
  - Ear infection [Fatal]
  - Disability [Fatal]
  - Decreased appetite [Fatal]
  - Depression [Fatal]
  - Duodenal ulcer perforation [Fatal]
  - Abdominal discomfort [Fatal]
  - Dyspepsia [Fatal]
  - Alopecia [Fatal]
  - Deep vein thrombosis postoperative [Fatal]
  - Arthropathy [Fatal]
  - Condition aggravated [Fatal]
  - Contraindicated product administered [Fatal]
  - Crohn^s disease [Fatal]
